FAERS Safety Report 6719317-0 (Version None)
Quarter: 2010Q2

REPORT INFORMATION
  Report Type: 
  Country: None (occurrence: None)
  Receive Date: 20100511
  Receipt Date: 20100503
  Transmission Date: 20101027
  Serious: Yes (Hospitalization)
  Sender: FDA-Public Use
  Company Number: PHHO2010DE06652

PATIENT
  Sex: Male
  Weight: 59.6 kg

DRUGS (21)
  1. AEB071 AEB+GELCAP [Suspect]
     Indication: RENAL TRANSPLANT
     Dosage: UNK
     Route: 048
  2. CERTICAN [Suspect]
     Indication: RENAL TRANSPLANT
     Dosage: 3 MG, BID
     Route: 048
     Dates: start: 20100426, end: 20100430
  3. SIMULECT [Concomitant]
     Indication: RENAL TRANSPLANT
     Dosage: UNK
     Route: 042
     Dates: start: 20100426, end: 20100426
  4. SIMULECT [Concomitant]
     Dosage: UNK
     Route: 042
     Dates: start: 20100430, end: 20100430
  5. PERFALGAN [Concomitant]
     Indication: PAIN PROPHYLAXIS
  6. LASIX [Concomitant]
     Indication: PROPHYLAXIS
  7. SODIUM CHLORIDE [Concomitant]
  8. GELAFUNDIN [Concomitant]
  9. CANDIO-HERMAL [Concomitant]
     Indication: INFECTION PROPHYLAXIS
  10. PENTAMIDINE ISETHIONATE [Concomitant]
     Indication: INFECTION PROPHYLAXIS
  11. SODIUM POLYSTYRENE SULFONATE [Concomitant]
     Indication: HYPERKALAEMIA
  12. TURIXIN [Concomitant]
     Indication: INFECTION PROPHYLAXIS
  13. ZEFFIX [Concomitant]
     Indication: HEPATITIS B
  14. ACETYLCYSTEINE [Concomitant]
     Indication: PROPHYLAXIS
  15. DIPIDOLOR [Concomitant]
     Indication: PAIN PROPHYLAXIS
  16. PANTOZOL [Concomitant]
     Indication: GASTRITIS PROPHYLAXIS
  17. SULTANOL [Concomitant]
     Indication: PROPHYLAXIS
  18. CALCIUM [Concomitant]
  19. HEPARIN [Concomitant]
     Indication: THROMBOSIS PROPHYLAXIS
  20. VALCYTE [Concomitant]
     Indication: INFECTION PROPHYLAXIS
  21. KEPINOL [Concomitant]
     Indication: INFECTION PROPHYLAXIS

REACTIONS (3)
  - ELECTROCARDIOGRAM QT PROLONGED [None]
  - HAEMOGLOBIN DECREASED [None]
  - POST PROCEDURAL HAEMATOMA [None]
